FAERS Safety Report 9492629 (Version 2)
Quarter: 2013Q3

REPORT INFORMATION
  Report Type: Report from Study
  Country: BR (occurrence: BR)
  Receive Date: 20130830
  Receipt Date: 20130904
  Transmission Date: 20140515
  Serious: Yes (Hospitalization)
  Sender: FDA-Public Use
  Company Number: BR-US-EMD SERONO, INC.-7233684

PATIENT
  Age: 46 Year
  Sex: Female

DRUGS (6)
  1. REBIF [Suspect]
     Indication: RELAPSING-REMITTING MULTIPLE SCLEROSIS
     Dates: start: 20100614, end: 20130702
  2. ISONIAZID [Concomitant]
     Indication: INFECTION
  3. TANDRILAX [Concomitant]
     Indication: PRODUCT USED FOR UNKNOWN INDICATION
  4. OXCARBAZEPINE [Concomitant]
     Indication: PRODUCT USED FOR UNKNOWN INDICATION
  5. VENLAFAXINE [Concomitant]
     Indication: PRODUCT USED FOR UNKNOWN INDICATION
     Dates: start: 20110201
  6. VENLAFAXINE [Concomitant]

REACTIONS (3)
  - Vision blurred [Unknown]
  - Musculoskeletal stiffness [Unknown]
  - Drug ineffective [Unknown]
